FAERS Safety Report 25667759 (Version 1)
Quarter: 2025Q3

REPORT INFORMATION
  Report Type: Report from Study
  Country: US (occurrence: US)
  Receive Date: 20250812
  Receipt Date: 20250812
  Transmission Date: 20251021
  Serious: Yes (Other)
  Sender: ABBVIE
  Company Number: US-ABBVIE-6346090

PATIENT
  Age: 78 Year
  Sex: Female
  Weight: 71.213 kg

DRUGS (4)
  1. SKYRIZI [Suspect]
     Active Substance: RISANKIZUMAB-RZAA
     Indication: Crohn^s disease
     Route: 058
     Dates: start: 202408
  2. LOSARTAN [Concomitant]
     Active Substance: LOSARTAN
     Indication: Blood pressure abnormal
  3. PREGABALIN [Concomitant]
     Active Substance: PREGABALIN
     Indication: Neuropathy peripheral
  4. LEVOTHYROXINE [Concomitant]
     Active Substance: LEVOTHYROXINE
     Indication: Thyroid disorder

REACTIONS (10)
  - Retinal vein occlusion [Not Recovered/Not Resolved]
  - Crohn^s disease [Unknown]
  - Eye disorder [Unknown]
  - Papilloedema [Not Recovered/Not Resolved]
  - Therapeutic product effect decreased [Unknown]
  - Faeces discoloured [Recovering/Resolving]
  - Fatigue [Recovering/Resolving]
  - Defaecation urgency [Recovering/Resolving]
  - Glaucoma [Not Recovered/Not Resolved]
  - Asthenia [Recovering/Resolving]

NARRATIVE: CASE EVENT DATE: 20250401
